FAERS Safety Report 8519870 (Version 2)
Quarter: 2012Q4

REPORT INFORMATION
  Report Type: Report from Study
  Country: US (occurrence: US)
  Receive Date: 20120418
  Receipt Date: 20121205
  Transmission Date: 20130627
  Serious: Yes (Hospitalization)
  Sender: FDA-Public Use
  Company Number: US-BAXTER-2012BAX000058

PATIENT
  Age: 65 Year
  Sex: Female
  Weight: 74.91 kg

DRUGS (4)
  1. CYTOXAN? (CYCLOPHOSPHAMIDE FOR INJECTION, USP) [Suspect]
     Indication: MULTIPLE MYELOMA
     Route: 042
     Dates: start: 20111004
  2. VELCADE [Suspect]
     Indication: MULTIPLE MYELOMA
     Route: 042
     Dates: start: 20111004
  3. DECADRON [Suspect]
     Indication: MULTIPLE MYELOMA
     Route: 042
     Dates: start: 20111004
  4. DECADRON [Suspect]
     Route: 048
     Dates: start: 20111005

REACTIONS (1)
  - Diverticular perforation [Recovered/Resolved]
